FAERS Safety Report 5129293-2 (Version None)
Quarter: 2006Q4

REPORT INFORMATION
  Report Type: 
  Country: None (occurrence: None)
  Receive Date: 20061011
  Receipt Date: 20060928
  Transmission Date: 20070319
  Serious: Yes (Hospitalization)
  Sender: FDA-Public Use
  Company Number: 229662

PATIENT
  Age: 65 Year
  Sex: Female

DRUGS (5)
  1. RITUXAN [Suspect]
     Indication: NON-HODGKIN'S LYMPHOMA
     Dosage: 375 MG, INTRAVENOUS
     Route: 042
     Dates: start: 20060107
  2. ADRIACIN (DOXORUBICIN/DOXORUBICIN HYDROCHLORIDE) [Suspect]
     Indication: NON-HODGKIN'S LYMPHOMA
     Dates: start: 20051116
  3. CYCLOPHOSPHAMIDE [Suspect]
     Indication: NON-HODGKIN'S LYMPHOMA
     Dates: start: 20051116
  4. ONCOVIN [Suspect]
     Indication: NON-HODGKIN'S LYMPHOMA
     Dates: start: 20051116
  5. PREDNISOLONE [Suspect]
     Indication: NON-HODGKIN'S LYMPHOMA
     Dates: start: 20051116

REACTIONS (1)
  - PERICARDIAL EFFUSION [None]
